FAERS Safety Report 21551092 (Version 1)
Quarter: 2022Q4

REPORT INFORMATION
  Report Type: Spontaneous
  Country: US (occurrence: None)
  Receive Date: 20221102
  Receipt Date: 20221102
  Transmission Date: 20230113
  Serious: Yes (Death)
  Sender: FDA-Public Use
  Company Number: None

PATIENT
  Age: 13 Year
  Sex: Male

DRUGS (1)
  1. ZARXIO [Suspect]
     Active Substance: FILGRASTIM-SNDZ
     Indication: Anaplastic large-cell lymphoma
     Dosage: FREQUENCY : DAILY;?
     Route: 058
     Dates: start: 202207, end: 20221026

REACTIONS (1)
  - Death [None]

NARRATIVE: CASE EVENT DATE: 20221026
